FAERS Safety Report 7025687-9 (Version None)
Quarter: 2010Q4

REPORT INFORMATION
  Report Type: 
  Country: None (occurrence: None)
  Receive Date: 20101004
  Receipt Date: 20100922
  Transmission Date: 20110411
  Serious: Yes (Hospitalization)
  Sender: FDA-Public Use
  Company Number: US-BIOGENIDEC-2010BI022096

PATIENT
  Age: 19 Year
  Sex: Female

DRUGS (12)
  1. TYSABRI [Suspect]
     Indication: CROHN'S DISEASE
     Route: 042
     Dates: start: 20090529
  2. CALTRATE D [Concomitant]
     Route: 048
  3. PREDNISONE [Concomitant]
     Route: 048
  4. PREDNISONE [Concomitant]
     Route: 048
     Dates: end: 20100901
  5. PEPCID [Concomitant]
     Route: 048
  6. PRENATAL VITAMINS [Concomitant]
     Indication: PREGNANCY
     Route: 048
  7. ZOMIG [Concomitant]
     Indication: MIGRAINE
     Route: 048
  8. ZANTAC [Concomitant]
     Route: 048
  9. FERROUS GLUCONATE [Concomitant]
     Route: 048
  10. NEURONTIN [Concomitant]
     Indication: MIGRAINE
     Route: 048
  11. LIDEX [Concomitant]
     Indication: RASH
     Route: 061
  12. AMBIEN [Concomitant]
     Route: 048

REACTIONS (3)
  - ABDOMINAL PAIN [None]
  - CROHN'S DISEASE [None]
  - HEPATIC ENZYME INCREASED [None]
